FAERS Safety Report 5023231-9 (Version None)
Quarter: 2006Q2

REPORT INFORMATION
  Report Type: 
  Country: None (occurrence: None)
  Receive Date: 20060606
  Receipt Date: 20060517
  Transmission Date: 20061013
  Serious: Yes (Hospitalization, Other)
  Sender: FDA-Public Use
  Company Number: NL200605000100

PATIENT
  Age: 49 Year
  Sex: Female
  Weight: 75 kg

DRUGS (5)
  1. HUMATROPE [Suspect]
     Indication: GROWTH HORMONE DEFICIENCY
     Dosage: 0.4 MG, SUBCUTANEOUS
     Route: 058
     Dates: start: 20020925, end: 20051123
  2. HYDROCORTISONE [Concomitant]
  3. MARVELON (DESOGESTREL, ETHINYLESTRADIOL) [Concomitant]
  4. HYDROCHLOROTHIAZIDE [Concomitant]
  5. FELODIPINE [Concomitant]

REACTIONS (1)
  - COLON CANCER [None]
